FAERS Safety Report 16050964 (Version 10)
Quarter: 2021Q2

REPORT INFORMATION
  Report Type: Spontaneous
  Country: DE (occurrence: DE)
  Receive Date: 20190308
  Receipt Date: 20210602
  Transmission Date: 20210716
  Serious: Yes (Death, Life-Threatening, Hospitalization, Other)
  Sender: FDA-Public Use
  Company Number: DE-AUROBINDO-AUR-APL-2019-011737

PATIENT
  Age: 66 Year
  Sex: Female
  Weight: 40.7 kg

DRUGS (3)
  1. KISQALI [Suspect]
     Active Substance: RIBOCICLIB
     Dosage: 200 MILLIGRAM, ONCE A DAY
     Route: 048
     Dates: start: 20180714, end: 20181026
  2. KISQALI [Suspect]
     Active Substance: RIBOCICLIB
     Indication: BREAST CANCER METASTATIC
     Dosage: 200 MILLIGRAM, ONCE A DAY (21/7)
     Route: 048
     Dates: start: 20180714, end: 20181015
  3. LETROZOLE. [Suspect]
     Active Substance: LETROZOLE
     Indication: BREAST CANCER METASTATIC
     Dosage: 2.5 MILLIGRAM, ONCE A DAY (QD) 21/7
     Route: 048
     Dates: start: 20180714, end: 20181015

REACTIONS (17)
  - Neutropenia [Recovered/Resolved]
  - Cough [Unknown]
  - Septic shock [Fatal]
  - Alopecia [Unknown]
  - Nasopharyngitis [Recovered/Resolved]
  - Dyspnoea [Unknown]
  - General physical health deterioration [Fatal]
  - Intestinal ischaemia [Fatal]
  - Upper respiratory tract infection [Recovered/Resolved]
  - Alanine aminotransferase increased [Fatal]
  - Fatigue [Not Recovered/Not Resolved]
  - Candida infection [Unknown]
  - Nausea [Not Recovered/Not Resolved]
  - Chronic obstructive pulmonary disease [Fatal]
  - Mucosal inflammation [Unknown]
  - Aspartate aminotransferase increased [Fatal]
  - Faecaloma [Unknown]

NARRATIVE: CASE EVENT DATE: 201807
